FAERS Safety Report 9562068 (Version 1)
Quarter: 2013Q3

REPORT INFORMATION
  Report Type: Spontaneous
  Country: GB (occurrence: None)
  Receive Date: 20130925
  Receipt Date: 20130925
  Transmission Date: 20140515
  Serious: Yes (Hospitalization, Other)
  Sender: FDA-Public Use
  Company Number: GER/UKI/13/0034599

PATIENT
  Age: 67 Year
  Sex: Female

DRUGS (20)
  1. LEVOFLOXACIN [Suspect]
     Indication: CELLULITIS
     Dosage: ORAL
     Route: 048
  2. ERYTHROMYCIN [Suspect]
     Indication: CELLULITIS
     Dosage: 500 MG, 4 IN 1 D, ORAL
     Route: 048
  3. AMLODIPINE (AMLODIPINE) [Concomitant]
  4. ALENDRONIC ACID (ALENDRONIC ACID) [Concomitant]
  5. AMITRIPTYLINE HYDROCHLORIDE (AMITRIPTYLINE HYDROCHLORIDE) [Concomitant]
  6. ATORVASTATIN (ATORVASTATIN) [Concomitant]
  7. CITALOPRAM (CITALOPRAM) [Concomitant]
  8. EXENATIDE 9EXENATIDE) [Concomitant]
  9. FOLIC ACID (FOLIC ACID) [Concomitant]
  10. FUROSEMIDE (FUROSEMIDE) [Concomitant]
  11. LANTUS (INSULIN GLARGINE) [Concomitant]
  12. LISINOPRIL (LISINOPRIL) [Concomitant]
  13. METFORMIN (METFORMIN) [Concomitant]
  14. METHOTREXATE (METHOTREXATE) [Concomitant]
  15. NOVORAPID (INSULIN ASPART) [Concomitant]
  16. PREDNISOLONE (PREDNISOLONE) [Concomitant]
  17. PROPANTHELINE (PROPANTHELINE) [Concomitant]
  18. PYRIDOSTIGMINE (PYRIDOSTIGMINE) [Concomitant]
  19. SPIRONOLACTONE (SPIRONOLACTONE) [Concomitant]
  20. WARFARIN (WARFARIN) [Concomitant]

REACTIONS (7)
  - Treatment failure [None]
  - Pyrexia [None]
  - Malaise [None]
  - Erythema [None]
  - Local swelling [None]
  - Tenderness [None]
  - Inflammation [None]
